FAERS Safety Report 6040047-5 (Version None)
Quarter: 2009Q1

REPORT INFORMATION
  Report Type: 
  Country: None (occurrence: None)
  Receive Date: 20090116
  Receipt Date: 20071126
  Transmission Date: 20090719
  Serious: No
  Sender: FDA-Public Use
  Company Number: US-BRISTOL-MYERS SQUIBB COMPANY-13995717

PATIENT

DRUGS (2)
  1. ABILIFY [Suspect]
     Route: 048
  2. DEPAKOTE [Concomitant]

REACTIONS (2)
  - BLOOD CHOLESTEROL ABNORMAL [None]
  - LIVER FUNCTION TEST ABNORMAL [None]
